FAERS Safety Report 4267356-4 (Version None)
Quarter: 2004Q1

REPORT INFORMATION
  Report Type: 
  Country: None (occurrence: None)
  Receive Date: 20040107
  Receipt Date: 20031222
  Transmission Date: 20041129
  Serious: Yes (Death, Hospitalization)
  Sender: FDA-Public Use
  Company Number: 200314350

PATIENT
  Age: 6 Year
  Sex: Female
  Weight: 11.25 kg

DRUGS (1)
  1. DYSPORT (BOTULINUM TOXIN TYPE A) [Suspect]
     Indication: MUSCLE SPASTICITY
     Dosage: 600 UNITS PRN IM
     Route: 030
     Dates: start: 20021101, end: 20030401

REACTIONS (21)
  - ASTHENIA [None]
  - ATELECTASIS [None]
  - BLADDER DISTENSION [None]
  - BLOOD CREATININE DECREASED [None]
  - BLOOD UREA INCREASED [None]
  - BOTULISM [None]
  - CHOKING [None]
  - CONSTIPATION [None]
  - DYSPHAGIA [None]
  - FAECALOMA [None]
  - HYPOTONIA [None]
  - HYPOXIA [None]
  - IATROGENIC INJURY [None]
  - MEAN CELL VOLUME DECREASED [None]
  - MUCOSAL DRYNESS [None]
  - PLATELET COUNT INCREASED [None]
  - PNEUMONIA ASPIRATION [None]
  - RESPIRATORY FAILURE [None]
  - SEPSIS [None]
  - TRACHEOBRONCHITIS [None]
  - URINARY RETENTION [None]
